FAERS Safety Report 25400599 (Version 1)
Quarter: 2025Q2

REPORT INFORMATION
  Report Type: Spontaneous
  Country: US (occurrence: US)
  Receive Date: 20250605
  Receipt Date: 20250605
  Transmission Date: 20250717
  Serious: Yes (Death, Hospitalization)
  Sender: GAMIDA CELL
  Company Number: US-GAMIDA CELL LTD.-GC-25US000017

PATIENT

DRUGS (2)
  1. OMISIRGE [Suspect]
     Active Substance: OMIDUBICEL-ONLV
     Indication: Acute myeloid leukaemia
     Route: 042
     Dates: start: 20250312, end: 20250312
  2. TACROLIMUS [Concomitant]
     Active Substance: TACROLIMUS
     Indication: Prophylaxis against graft versus host disease

REACTIONS (5)
  - Acute respiratory failure [Fatal]
  - Hypervolaemia [Fatal]
  - Failure to thrive [Fatal]
  - Acute kidney injury [Recovered/Resolved]
  - Septic shock [Recovered/Resolved]

NARRATIVE: CASE EVENT DATE: 20250322
